FAERS Safety Report 17523663 (Version 1)
Quarter: 2020Q1

REPORT INFORMATION
  Report Type: Spontaneous
  Country: ES (occurrence: ES)
  Receive Date: 20200310
  Receipt Date: 20200310
  Transmission Date: 20200409
  Serious: Yes (Other)
  Sender: FDA-Public Use
  Company Number: ES-MYLANLABS-2020M1025654

PATIENT
  Age: 81 Year
  Sex: Female

DRUGS (1)
  1. FENTANYL. [Suspect]
     Active Substance: FENTANYL
     Indication: BACK PAIN
     Dosage: UNK
     Route: 062
     Dates: start: 2019, end: 20191110

REACTIONS (5)
  - Anxiety [Unknown]
  - Withdrawal syndrome [Unknown]
  - Depression [Unknown]
  - Nervousness [Unknown]
  - Product monitoring error [Recovered/Resolved]

NARRATIVE: CASE EVENT DATE: 20191110
